FAERS Safety Report 7144795-5 (Version None)
Quarter: 2010Q4

REPORT INFORMATION
  Report Type: 
  Country: None (occurrence: None)
  Receive Date: 20101112
  Receipt Date: 20101004
  Transmission Date: 20110411
  Serious: Yes (Other)
  Sender: FDA-Public Use
  Company Number: 1000016640

PATIENT
  Age: 39 Year
  Sex: Female
  Weight: 81.4 kg

DRUGS (9)
  1. SAVELLA [Suspect]
     Indication: FIBROMYALGIA
     Dosage: 10 MG (50 MG, 2 IN 1 D),ORAL
     Route: 048
     Dates: start: 20100112, end: 20100225
  2. BENICAR [Concomitant]
  3. FLUOXETINE [Concomitant]
  4. METOPROLOL SUCCINATE [Concomitant]
  5. FUROSEMIDE [Concomitant]
  6. FLEXRIL [Concomitant]
  7. REQUIP (ROPINIROLE HYDROCHLORDE) (ROPINIROLE) [Concomitant]
  8. LIPTIRO (ATORVASTATIN CALCIUM) (ATORVASTATIN CALCIUM) [Concomitant]
  9. NABUMETONE (NABUMETONE) (NABUMATONE) [Concomitant]

REACTIONS (1)
  - BLOOD PRESSURE INCREASED [None]
